FAERS Safety Report 25573729 (Version 1)
Quarter: 2025Q3

REPORT INFORMATION
  Report Type: Spontaneous
  Country: JP (occurrence: JP)
  Receive Date: 20250717
  Receipt Date: 20250717
  Transmission Date: 20251021
  Serious: Yes (Other)
  Sender: INTERCHEM
  Company Number: JP-HQ SPECIALTY-JP-2025INT000053

PATIENT
  Age: 2 Decade
  Sex: Female

DRUGS (3)
  1. DEXMEDETOMIDINE HYDROCHLORIDE [Suspect]
     Active Substance: DEXMEDETOMIDINE HYDROCHLORIDE
     Indication: Sedation
     Route: 065
  2. MIDAZOLAM [Concomitant]
     Active Substance: MIDAZOLAM
     Indication: Sedative therapy
     Route: 065
  3. REMIFENTANIL [Concomitant]
     Active Substance: REMIFENTANIL
     Indication: Sedative therapy
     Route: 065

REACTIONS (1)
  - Transcranial electrical motor evoked potential monitoring abnormal [Recovering/Resolving]
